FAERS Safety Report 6054621-3 (Version None)
Quarter: 2009Q1

REPORT INFORMATION
  Report Type: 
  Country: None (occurrence: None)
  Receive Date: 20090128
  Receipt Date: 20090120
  Transmission Date: 20090719
  Serious: Yes (Other)
  Sender: FDA-Public Use
  Company Number: GB-RANBAXY-2009RR-20562

PATIENT
  Age: 46 Year
  Sex: Female
  Weight: 106 kg

DRUGS (9)
  1. CLARITHROMYCIN [Suspect]
     Indication: LOWER RESPIRATORY TRACT INFECTION
     Dosage: 500 MG, UNK
     Dates: start: 20081128, end: 20081130
  2. AMOXICILLIN [Concomitant]
     Dosage: 500 MG, TID
  3. FLUTICASONE PROPIONATE [Concomitant]
     Dosage: 250 MG, BID
     Route: 055
  4. MONTELUKAST SODIUM [Concomitant]
     Dosage: 10 MG, QD
  5. PREDNISOLONE [Concomitant]
     Dosage: 5 MG, UNK
  6. SALBUTAMOL [Concomitant]
     Dosage: 100 UG, PRN
     Route: 055
  7. SALBUTAMOL [Concomitant]
     Dosage: 2.5 MG, PRN
     Route: 055
  8. ALBUTEROL [Concomitant]
     Dosage: 25 MG, BID
     Route: 055
  9. SERETIDE [Suspect]
     Route: 055

REACTIONS (1)
  - DYSPNOEA [None]
